FAERS Safety Report 18900877 (Version 2)
Quarter: 2021Q1

REPORT INFORMATION
  Report Type: Spontaneous
  Country: US (occurrence: US)
  Receive Date: 20210216
  Receipt Date: 20210319
  Transmission Date: 20210420
  Serious: Yes (Other)
  Sender: FDA-Public Use
  Company Number: US-BAYER-2021-065156

PATIENT
  Age: 28 Year
  Sex: Female

DRUGS (1)
  1. KYLEENA [Suspect]
     Active Substance: LEVONORGESTREL
     Indication: CONTRACEPTION
     Dosage: 17.5 ?G PER DAY, CONTINUOUSLY
     Route: 015
     Dates: start: 20180504, end: 20210121

REACTIONS (5)
  - Abdominal pain lower [None]
  - Pelvic pain [None]
  - Vaginal haemorrhage [None]
  - Device physical property issue [None]
  - Embedded device [Recovered/Resolved]

NARRATIVE: CASE EVENT DATE: 2020
